FAERS Safety Report 5267005-2 (Version None)
Quarter: 2007Q1

REPORT INFORMATION
  Report Type: 
  Country: None (occurrence: None)
  Receive Date: 20070316
  Receipt Date: 20070305
  Transmission Date: 20070707
  Serious: Yes (Hospitalization)
  Sender: FDA-Public Use
  Company Number: US-BAYER-200710700BCC

PATIENT
  Age: 90 Year
  Sex: Male
  Weight: 77 kg

DRUGS (5)
  1. PHILLIPS LIQUID GELS [Suspect]
     Indication: CONSTIPATION
     Route: 048
     Dates: start: 20070101
  2. AVAPRO [Concomitant]
  3. TOPROL-XL [Concomitant]
  4. XANAX [Concomitant]
  5. GLUCOSAMINE [Concomitant]

REACTIONS (3)
  - COUGH [None]
  - DYSPEPSIA [None]
  - THROAT IRRITATION [None]
